FAERS Safety Report 12346749 (Version 1)
Quarter: 2016Q2

REPORT INFORMATION
  Report Type: Spontaneous
  Country: US (occurrence: None)
  Receive Date: 20160506
  Receipt Date: 20160506
  Transmission Date: 20160815
  Serious: Yes (Disabling)
  Sender: FDA-Public Use
  Company Number: None

PATIENT
  Age: 59 Year
  Sex: Female
  Weight: 86.18 kg

DRUGS (7)
  1. CENTRUM OVER 50+ [Concomitant]
  2. POTASSIUM [Concomitant]
     Active Substance: POTASSIUM
  3. CALCIUM [Concomitant]
     Active Substance: CALCIUM
  4. PREMARIN [Suspect]
     Active Substance: ESTROGENS, CONJUGATED
     Indication: VAGINAL DISORDER
     Dates: start: 20160415, end: 20160422
  5. JHIRA [Concomitant]
  6. MOTRIN [Concomitant]
     Active Substance: IBUPROFEN
  7. OPERZOLE [Concomitant]

REACTIONS (1)
  - Coital bleeding [None]

NARRATIVE: CASE EVENT DATE: 20160415
